FAERS Safety Report 7201450-0 (Version None)
Quarter: 2010Q4

REPORT INFORMATION
  Report Type: 
  Country: None (occurrence: None)
  Receive Date: 20101229
  Receipt Date: 20101228
  Transmission Date: 20110411
  Serious: Yes (Other)
  Sender: FDA-Public Use
  Company Number: HU-GENZYME-CLOF-1001215

PATIENT
  Sex: Female
  Weight: 28 kg

DRUGS (10)
  1. EVOLTRA [Suspect]
     Indication: ACUTE LYMPHOCYTIC LEUKAEMIA
     Dosage: 50 MG/M2, QDX4
     Route: 042
     Dates: start: 20090119, end: 20090122
  2. BUSILVEX [Suspect]
     Indication: ACUTE LYMPHOCYTIC LEUKAEMIA
     Dosage: 16 MG/KG, UNK
     Route: 042
     Dates: start: 20090119, end: 20090123
  3. CYCLOPHOSPHAMIDE [Suspect]
     Indication: ACUTE LYMPHOCYTIC LEUKAEMIA
     Dosage: 120 MG/KG, UNK
     Route: 042
     Dates: start: 20090123, end: 20090124
  4. METHOTREXATE [Suspect]
     Indication: ACUTE LYMPHOCYTIC LEUKAEMIA
     Dosage: UNK
     Route: 065
     Dates: start: 20090123, end: 20090124
  5. CYCLOSPORINE [Concomitant]
     Indication: PROPHYLAXIS AGAINST GRAFT VERSUS HOST DISEASE
  6. METHOTREXATE [Concomitant]
     Indication: PROPHYLAXIS AGAINST GRAFT VERSUS HOST DISEASE
  7. METHOTREXATE [Concomitant]
     Dosage: 10 MG/M2, QD
     Route: 065
     Dates: start: 20090127, end: 20090127
  8. METHOTREXATE [Concomitant]
     Dosage: 10 MG/M2, QD
     Route: 065
     Dates: start: 20090129, end: 20090129
  9. METHOTREXATE [Concomitant]
     Dosage: 10 MG/M2, QD
     Route: 065
     Dates: start: 20090201, end: 20090201
  10. METHOTREXATE [Concomitant]
     Dosage: 10 MG/M2, QD
     Route: 065
     Dates: start: 20090206, end: 20090206

REACTIONS (1)
  - ACUTE GRAFT VERSUS HOST DISEASE [None]
